FAERS Safety Report 23673874 (Version 1)
Quarter: 2024Q1

REPORT INFORMATION
  Report Type: Spontaneous
  Country: US (occurrence: None)
  Receive Date: 20240325
  Receipt Date: 20240325
  Transmission Date: 20240410
  Serious: Yes (Hospitalization)
  Sender: FDA-Public Use
  Company Number: None

PATIENT
  Age: 75 Year
  Sex: Male
  Weight: 91.8 kg

DRUGS (12)
  1. XTANDI [Suspect]
     Active Substance: ENZALUTAMIDE
     Indication: Prostate cancer
     Dosage: OTHER QUANTITY : 4 TABLET(S);?FREQUENCY : DAILY;?
     Route: 048
     Dates: start: 20231220, end: 20240320
  2. METFORMIN [Concomitant]
     Active Substance: METFORMIN HYDROCHLORIDE
  3. GLIPIZIDE [Concomitant]
     Active Substance: GLIPIZIDE
  4. MESALAMINE [Concomitant]
     Active Substance: MESALAMINE
  5. carvediol phosphate ER [Concomitant]
  6. LOSARTAN POTASSIUM [Concomitant]
     Active Substance: LOSARTAN POTASSIUM
  7. SIMVASTATIN [Concomitant]
     Active Substance: SIMVASTATIN
  8. ASPIRIN [Concomitant]
     Active Substance: ASPIRIN
  9. OZEMPIC [Concomitant]
     Active Substance: SEMAGLUTIDE
  10. certirizine hydrochloride [Concomitant]
  11. VITAMINS [Concomitant]
     Active Substance: VITAMINS
  12. preservation [Concomitant]

REACTIONS (3)
  - Back pain [None]
  - Seizure [None]
  - Tongue biting [None]

NARRATIVE: CASE EVENT DATE: 20240320
